FAERS Safety Report 20680338 (Version 1)
Quarter: 2022Q2

REPORT INFORMATION
  Report Type: Spontaneous
  Country: US (occurrence: US)
  Receive Date: 20220406
  Receipt Date: 20220406
  Transmission Date: 20220721
  Serious: No
  Sender: FDA-Public Use
  Company Number: US-ORGANON-O2203USA001743

PATIENT
  Age: 34 Year
  Sex: Female

DRUGS (2)
  1. DIPROLENE [Suspect]
     Active Substance: BETAMETHASONE DIPROPIONATE
     Indication: Hand dermatitis
     Dosage: UNK
  2. PROTOPIC [Suspect]
     Active Substance: TACROLIMUS
     Indication: Hand dermatitis
     Dosage: UNK

REACTIONS (1)
  - Drug ineffective [Unknown]
